FAERS Safety Report 5938117-2 (Version None)
Quarter: 2008Q4

REPORT INFORMATION
  Report Type: 
  Country: None (occurrence: None)
  Receive Date: 20081031
  Receipt Date: 20081021
  Transmission Date: 20090506
  Serious: Yes (Life-Threatening)
  Sender: FDA-Public Use
  Company Number: CN-PFIZER INC-2008088820

PATIENT
  Sex: Male

DRUGS (3)
  1. ZYVOX [Suspect]
     Indication: STAPHYLOCOCCAL INFECTION
     Route: 042
     Dates: start: 20081014, end: 20081017
  2. ZYVOX [Suspect]
     Dosage: DAILY DOSE:600MG
     Route: 042
     Dates: start: 20081018, end: 20081023
  3. NORVANCOMYCIN HYDROCHLORIDE [Concomitant]
     Dates: start: 20080101, end: 20080101

REACTIONS (1)
  - RENAL FAILURE [None]
